FAERS Safety Report 20323712 (Version 2)
Quarter: 2022Q2

REPORT INFORMATION
  Report Type: Report from Study
  Country: CA (occurrence: CA)
  Receive Date: 20220111
  Receipt Date: 20220520
  Transmission Date: 20220720
  Serious: Yes (Death, Hospitalization, Other)
  Sender: FDA-Public Use
  Company Number: CA-PFIZER INC-202200019550

PATIENT
  Age: 77 Year
  Sex: Male
  Weight: 70 kg

DRUGS (14)
  1. AXITINIB [Suspect]
     Active Substance: AXITINIB
     Dosage: UNK
     Route: 065
  2. PEMBROLIZUMAB [Suspect]
     Active Substance: PEMBROLIZUMAB
     Indication: Metastatic renal cell carcinoma
     Dosage: 200 MG, EVERY 3 WEEKS
     Route: 042
     Dates: start: 2021, end: 2021
  3. PEMBROLIZUMAB [Suspect]
     Active Substance: PEMBROLIZUMAB
     Indication: Metastatic renal cell carcinoma
     Dosage: 200 MG, EVERY 3 WEEKS
     Route: 065
     Dates: start: 20200716
  4. PEMBROLIZUMAB [Suspect]
     Active Substance: PEMBROLIZUMAB
     Dosage: 200 MG, EVERY 3 WEEKS
     Route: 065
     Dates: start: 20200806
  5. PEMBROLIZUMAB [Suspect]
     Active Substance: PEMBROLIZUMAB
     Dosage: 200 MG, EVERY 3 WEEKS
     Route: 065
     Dates: start: 20200827
  6. PEMBROLIZUMAB [Suspect]
     Active Substance: PEMBROLIZUMAB
     Dosage: 200 MG, EVERY 3 WEEKS
     Route: 065
     Dates: start: 20200917
  7. PEMBROLIZUMAB [Suspect]
     Active Substance: PEMBROLIZUMAB
     Dosage: 200 MG, EVERY 3 WEEKS
     Route: 065
     Dates: start: 20201008
  8. PEMBROLIZUMAB [Suspect]
     Active Substance: PEMBROLIZUMAB
     Dosage: 200 MG, EVERY 3 WEEKS
     Route: 065
     Dates: start: 20201029
  9. PEMBROLIZUMAB [Suspect]
     Active Substance: PEMBROLIZUMAB
     Dosage: 200 MG, EVERY 3 WEEKS
     Route: 065
     Dates: start: 20201119
  10. PEMBROLIZUMAB [Suspect]
     Active Substance: PEMBROLIZUMAB
     Dosage: 200 MG, EVERY 3 WEEKS
     Route: 065
     Dates: start: 20201210
  11. PEMBROLIZUMAB [Suspect]
     Active Substance: PEMBROLIZUMAB
     Dosage: 200 MG, EVERY 3 WEEKS
     Route: 065
     Dates: start: 2021
  12. PEMBROLIZUMAB [Suspect]
     Active Substance: PEMBROLIZUMAB
     Dosage: 200 MG, EVERY 3 WEEKS
     Route: 065
     Dates: start: 2021
  13. PEMBROLIZUMAB [Suspect]
     Active Substance: PEMBROLIZUMAB
     Dosage: 200 MG, EVERY 3 WEEKS
     Route: 065
     Dates: start: 2021
  14. PEMBROLIZUMAB [Suspect]
     Active Substance: PEMBROLIZUMAB
     Dosage: 200 MG, EVERY 3 WEEKS
     Route: 065
     Dates: start: 2021

REACTIONS (28)
  - Post procedural complication [Fatal]
  - Anger [Unknown]
  - Anxiety [Unknown]
  - Back pain [Unknown]
  - Blood pressure abnormal [Unknown]
  - Blood pressure increased [Not Recovered/Not Resolved]
  - Central venous catheterisation [Unknown]
  - Decreased appetite [Unknown]
  - Dehydration [Unknown]
  - Depressed mood [Unknown]
  - Depression [Unknown]
  - Disturbance in attention [Unknown]
  - Dyspnoea [Unknown]
  - Fatigue [Unknown]
  - Frustration tolerance decreased [Unknown]
  - General physical condition abnormal [Unknown]
  - Malaise [Unknown]
  - Memory impairment [Unknown]
  - Nausea [Unknown]
  - Pain [Unknown]
  - Pneumonia [Recovering/Resolving]
  - Procedural complication [Unknown]
  - Pulse abnormal [Unknown]
  - Sleep disorder [Unknown]
  - Somnolence [Unknown]
  - Surgery [Recovering/Resolving]
  - Weight abnormal [Unknown]
  - Weight decreased [Unknown]

NARRATIVE: CASE EVENT DATE: 20200101
